FAERS Safety Report 9481053 (Version 1)
Quarter: 2013Q3

REPORT INFORMATION
  Report Type: Spontaneous
  Country: US (occurrence: US)
  Receive Date: 20130828
  Receipt Date: 20130828
  Transmission Date: 20140515
  Serious: Yes (Hospitalization)
  Sender: FDA-Public Use
  Company Number: US-AMGEN-KDL150474

PATIENT
  Age: 67 Year
  Sex: Female

DRUGS (1)
  1. ENBREL [Suspect]
     Indication: RHEUMATOID ARTHRITIS
     Dosage: 50 MG, QWK
     Route: 058
     Dates: start: 20041101, end: 20050715

REACTIONS (5)
  - Platelet count decreased [Unknown]
  - Rheumatoid arthritis [Unknown]
  - Condition aggravated [Unknown]
  - Cardiac pacemaker replacement [Recovered/Resolved]
  - Abscess limb [Unknown]
